FAERS Safety Report 25494531 (Version 1)
Quarter: 2025Q2

REPORT INFORMATION
  Report Type: Spontaneous
  Country: US (occurrence: None)
  Receive Date: 20250627
  Receipt Date: 20250627
  Transmission Date: 20250717
  Serious: No
  Sender: FDA-CTU
  Company Number: None

PATIENT
  Age: 78 Year
  Sex: Male
  Weight: 95.25 kg

DRUGS (2)
  1. RINVOQ [Suspect]
     Active Substance: UPADACITINIB
     Indication: Rheumatoid arthritis
     Dosage: FREQUENCY : DAILY;?
     Route: 048
     Dates: start: 202204
  2. TAMSULOSIN [Suspect]
     Active Substance: TAMSULOSIN

REACTIONS (4)
  - Urinary retention [None]
  - Haemorrhage [None]
  - Thrombosis [None]
  - Therapy interrupted [None]
